FAERS Safety Report 4579616-8 (Version None)
Quarter: 2005Q1

REPORT INFORMATION
  Report Type: 
  Country: None (occurrence: None)
  Receive Date: 20050210
  Receipt Date: 20050126
  Transmission Date: 20050727
  Serious: Yes (Life-Threatening, Hospitalization)
  Sender: FDA-Public Use
  Company Number: 2004-BP-07053YA

PATIENT
  Age: 69 Year
  Sex: Male

DRUGS (4)
  1. HARNAL (TAMSULOSIN) [Suspect]
     Indication: BENIGN PROSTATIC HYPERPLASIA
     Dosage: 0.2 MG (0.2 MG QD) , PO
     Route: 048
     Dates: start: 20040601, end: 20040807
  2. LECORUC (CHLORMADINONE ACETATE) [Suspect]
     Indication: BENIGN PROSTATIC HYPERPLASIA
     Dosage: 50 MG (25 MG BID), PO
     Route: 048
     Dates: start: 20040601, end: 20040807
  3. TAKAVENSU (MELILOT) [Suspect]
     Indication: HAEMORRHOIDS
     Dosage: SEE TEXT (2 DF TID), PO
     Route: 048
     Dates: start: 20040101, end: 20040807
  4. TAKAVENSU (MELILOT) [Suspect]
     Indication: RECTAL PROLAPSE
     Dosage: SEE TEXT (2 DF TID), PO
     Route: 048
     Dates: start: 20040101, end: 20040807

REACTIONS (4)
  - HAEMORRHOIDS [None]
  - HEPATOCELLULAR DAMAGE [None]
  - JAUNDICE [None]
  - LIVER DISORDER [None]
